FAERS Safety Report 24712125 (Version 1)
Quarter: 2024Q4

REPORT INFORMATION
  Report Type: Spontaneous
  Country: FR (occurrence: FR)
  Receive Date: 20241209
  Receipt Date: 20241209
  Transmission Date: 20250115
  Serious: Yes (Hospitalization, Other)
  Sender: BRISTOL-MYERS SQUIBB COMPANY
  Company Number: None

PATIENT
  Age: 71 Year
  Sex: Male
  Weight: 96 kg

DRUGS (3)
  1. NIVOLUMAB [Suspect]
     Active Substance: NIVOLUMAB
     Indication: Oesophageal carcinoma
     Dosage: C1J15
     Route: 042
     Dates: start: 20241023, end: 20241106
  2. RIFAMPIN [Suspect]
     Active Substance: RIFAMPIN
     Indication: Catheter site infection
     Route: 042
     Dates: start: 20241112, end: 20241118
  3. FUROSEMIDE [Suspect]
     Active Substance: FUROSEMIDE
     Indication: Hypertension
     Route: 048
     Dates: end: 20241118

REACTIONS (2)
  - Pemphigoid [Not Recovered/Not Resolved]
  - Off label use [Unknown]

NARRATIVE: CASE EVENT DATE: 20241113
